FAERS Safety Report 10480309 (Version 1)
Quarter: 2014Q3

REPORT INFORMATION
  Report Type: Spontaneous
  Country: US (occurrence: US)
  Receive Date: 20140929
  Receipt Date: 20140929
  Transmission Date: 20150326
  Serious: Yes (Hospitalization)
  Sender: FDA-Public Use
  Company Number: US-SHIRE-US201406227

PATIENT
  Age: 27 Year
  Sex: Male
  Weight: 93.88 kg

DRUGS (1)
  1. VPRIV [Suspect]
     Active Substance: VELAGLUCERASE ALFA
     Indication: GAUCHER^S DISEASE
     Dosage: 4000 IU, 1X/2WKS
     Route: 041

REACTIONS (2)
  - Meningitis viral [Not Recovered/Not Resolved]
  - West Nile viral infection [Not Recovered/Not Resolved]

NARRATIVE: CASE EVENT DATE: 20140918
